FAERS Safety Report 23696153 (Version 1)
Quarter: 2024Q2

REPORT INFORMATION
  Report Type: Spontaneous
  Country: IN (occurrence: IN)
  Receive Date: 20240402
  Receipt Date: 20240402
  Transmission Date: 20240715
  Serious: Yes (Other)
  Sender: FDA-Public Use
  Company Number: IN-ABBOTT-2024A-1379085

PATIENT

DRUGS (5)
  1. LEVOTHYROXINE [Suspect]
     Active Substance: LEVOTHYROXINE\LEVOTHYROXINE SODIUM
     Indication: Product used for unknown indication
     Dosage: THYRONORM 25 MCG
     Route: 048
  2. LEVOTHYROXINE [Suspect]
     Active Substance: LEVOTHYROXINE\LEVOTHYROXINE SODIUM
     Indication: Product used for unknown indication
     Dosage: USED 2 TABLETS OF 12.5 MCG
     Route: 048
  3. LEVOTHYROXINE [Suspect]
     Active Substance: LEVOTHYROXINE\LEVOTHYROXINE SODIUM
     Indication: Product used for unknown indication
     Dosage: USED 2 TABLETS OF 12.5 MCG
     Route: 048
  4. Smuth [Concomitant]
     Indication: Product used for unknown indication
     Dosage: SMUTH SYRUP
  5. BETADINE [Concomitant]
     Active Substance: POVIDONE-IODINE
     Indication: Product used for unknown indication
     Dosage: BETADINE LOTION

REACTIONS (3)
  - Swelling face [Unknown]
  - Unevaluable event [Unknown]
  - Peripheral swelling [Unknown]
